FAERS Safety Report 10721649 (Version 3)
Quarter: 2015Q1

REPORT INFORMATION
  Report Type: Spontaneous
  Country: US (occurrence: US)
  Receive Date: 20150119
  Receipt Date: 20150216
  Transmission Date: 20150721
  Serious: No
  Sender: FDA-Public Use
  Company Number: US-SHIRE-US201500319

PATIENT
  Sex: Male

DRUGS (2)
  1. LIALDA [Suspect]
     Active Substance: MESALAMINE
     Indication: PRODUCT USED FOR UNKNOWN INDICATION
     Dosage: UNK UNK, UNKNOWN
     Route: 048
  2. LIALDA [Suspect]
     Active Substance: MESALAMINE
     Dosage: 9.6 G (EIGHT 1.2 G TABLETS), UNKNOWN (A DAY)
     Route: 048

REACTIONS (4)
  - Drug ineffective [Recovered/Resolved]
  - Condition aggravated [Unknown]
  - Drug tolerance [Unknown]
  - Overdose [Recovered/Resolved]
